FAERS Safety Report 5186470-2 (Version None)
Quarter: 2006Q4

REPORT INFORMATION
  Report Type: 
  Country: None (occurrence: None)
  Receive Date: 20061220
  Receipt Date: 20061107
  Transmission Date: 20070319
  Serious: Yes (Hospitalization)
  Sender: FDA-Public Use
  Company Number: JP-BOEHRINGER INGELHEIM PHARMACEUTICALS, INC.-2006-BP-13033NB

PATIENT
  Sex: Male
  Weight: 47.2 kg

DRUGS (9)
  1. MICARDIS [Suspect]
     Indication: HYPERTENSION
     Route: 048
     Dates: start: 20061021, end: 20061021
  2. PHOSBLOCK [Concomitant]
     Indication: HYPERPHOSPHATAEMIA
     Route: 065
     Dates: start: 20060125
  3. METHYCOOL [Concomitant]
     Indication: NEUROPATHY PERIPHERAL
     Route: 065
     Dates: start: 20060125
  4. ISOSORBIDE MONONITRATE [Concomitant]
     Indication: ANGINA PECTORIS
     Route: 065
  5. SIGMART [Concomitant]
     Indication: ANGINA PECTORIS
     Route: 065
  6. ALLEGRA [Concomitant]
     Indication: RHINITIS ALLERGIC
     Route: 065
     Dates: start: 20061011
  7. CALTAN (PRECIPITATED CALCIUM CARBONATE) [Concomitant]
     Indication: HYPERPHOSPHATAEMIA
     Route: 065
     Dates: start: 20060222
  8. OPALMON [Concomitant]
     Indication: MITRAL VALVE INCOMPETENCE
     Route: 065
     Dates: start: 20050225
  9. ASPIRIN [Concomitant]
     Indication: ANGINA PECTORIS
     Route: 065
     Dates: start: 20060814

REACTIONS (8)
  - ATRIOVENTRICULAR BLOCK THIRD DEGREE [None]
  - CHEST DISCOMFORT [None]
  - CONDUCTION DISORDER [None]
  - DIZZINESS [None]
  - DYSPNOEA [None]
  - HAEMODIALYSIS [None]
  - MALAISE [None]
  - PAIN [None]
